FAERS Safety Report 11635491 (Version 1)
Quarter: 2015Q4

REPORT INFORMATION
  Report Type: Spontaneous
  Country: CA (occurrence: CA)
  Receive Date: 20151016
  Receipt Date: 20151016
  Transmission Date: 20160304
  Serious: Yes (Other)
  Sender: FDA-Public Use
  Company Number: CA-ROCHE-1644965

PATIENT
  Sex: Male

DRUGS (8)
  1. XOLAIR [Suspect]
     Active Substance: OMALIZUMAB
     Indication: ASTHMA
     Route: 058
     Dates: start: 20150427
  2. VENTOLIN [Concomitant]
     Active Substance: ALBUTEROL SULFATE
  3. PREDNISONE. [Concomitant]
     Active Substance: PREDNISONE
  4. VENTOLIN [Concomitant]
     Active Substance: ALBUTEROL SULFATE
  5. SINGULAIR [Concomitant]
     Active Substance: MONTELUKAST SODIUM
  6. ADVAIR HFA [Concomitant]
     Active Substance: FLUTICASONE PROPIONATE\SALMETEROL XINAFOATE
  7. FLOVENT [Concomitant]
     Active Substance: FLUTICASONE PROPIONATE
  8. ACTONEL [Concomitant]
     Active Substance: RISEDRONATE SODIUM

REACTIONS (13)
  - Sinusitis [Unknown]
  - Lung disorder [Unknown]
  - Obstructive airways disorder [Unknown]
  - Ageusia [Unknown]
  - Sinus disorder [Unknown]
  - Cough [Unknown]
  - Sputum retention [Unknown]
  - Anosmia [Unknown]
  - Forced expiratory volume decreased [Unknown]
  - Forced vital capacity decreased [Unknown]
  - Wheezing [Unknown]
  - Nasal congestion [Not Recovered/Not Resolved]
  - Paranasal sinus mucosal hypertrophy [Unknown]
